FAERS Safety Report 8396294-0 (Version None)
Quarter: 2012Q2

REPORT INFORMATION
  Report Type: 
  Country: None (occurrence: None)
  Receive Date: 20120530
  Receipt Date: 20120518
  Transmission Date: 20120825
  Serious: Yes (Hospitalization)
  Sender: FDA-Public Use
  Company Number: US-ELI_LILLY_AND_COMPANY-US201205007604

PATIENT
  Sex: Female

DRUGS (1)
  1. FORTEO [Suspect]
     Dosage: 20 DF, UNKNOWN

REACTIONS (4)
  - URINARY TRACT INFECTION [None]
  - HOSPITALISATION [None]
  - MALAISE [None]
  - DYSURIA [None]
